FAERS Safety Report 8185232-1 (Version None)
Quarter: 2012Q1

REPORT INFORMATION
  Report Type: 
  Country: None (occurrence: None)
  Receive Date: 20120305
  Receipt Date: 20120224
  Transmission Date: 20120608
  Serious: Yes (Hospitalization)
  Sender: FDA-Public Use
  Company Number: PHEH2012US004567

PATIENT

DRUGS (3)
  1. ZOMETA [Suspect]
  2. DECADRON [Suspect]
  3. VELCADE [Suspect]

REACTIONS (11)
  - VOMITING [None]
  - DYSPNOEA [None]
  - NAUSEA [None]
  - SYSTOLIC DYSFUNCTION [None]
  - PULMONARY OEDEMA [None]
  - URINARY TRACT INFECTION [None]
  - HAEMORRHAGE [None]
  - HYPERCHOLESTEROLAEMIA [None]
  - ACUTE MYOCARDIAL INFARCTION [None]
  - CHEST PAIN [None]
  - ADRENAL MASS [None]
